FAERS Safety Report 10218303 (Version 2)
Quarter: 2014Q2

REPORT INFORMATION
  Report Type: Spontaneous
  Country: US (occurrence: US)
  Receive Date: 20140605
  Receipt Date: 20140605
  Transmission Date: 20141212
  Serious: Yes (Other)
  Sender: FDA-Public Use
  Company Number: US-ASTELLAS-2014US004849

PATIENT
  Age: 81 Year
  Sex: Female

DRUGS (1)
  1. MYRBETRIQ [Suspect]
     Indication: NEUROGENIC BLADDER
     Route: 065
     Dates: start: 20140330, end: 201405

REACTIONS (12)
  - Disorientation [Unknown]
  - Blood pressure decreased [Recovered/Resolved]
  - Urticaria [Unknown]
  - Blood pressure increased [Unknown]
  - Dizziness [Unknown]
  - Pruritus [Unknown]
  - Fatigue [Unknown]
  - Lymphadenopathy [Unknown]
  - Night sweats [Unknown]
  - Drug ineffective [Unknown]
  - Off label use [Unknown]
  - Intentional product misuse [Unknown]
